FAERS Safety Report 5573417-X (Version None)
Quarter: 2007Q4

REPORT INFORMATION
  Report Type: 
  Country: None (occurrence: None)
  Receive Date: 20071220
  Receipt Date: 20071220
  Transmission Date: 20080405
  Serious: No
  Sender: FDA-Public Use
  Company Number: None

PATIENT
  Age: 59 Year
  Sex: Male

DRUGS (1)
  1. NIACIN [Suspect]
     Indication: HYPERLIPIDAEMIA
     Dosage: 1000MG  HS  PO
     Route: 048
     Dates: start: 20070912, end: 20071031

REACTIONS (5)
  - ANXIETY [None]
  - BURNING SENSATION [None]
  - DYSPNOEA [None]
  - PRURITUS [None]
  - TEARFULNESS [None]
